FAERS Safety Report 12478965 (Version 3)
Quarter: 2016Q3

REPORT INFORMATION
  Report Type: Report from Study
  Country: US (occurrence: US)
  Receive Date: 20160620
  Receipt Date: 20160810
  Transmission Date: 20161109
  Serious: Yes (Hospitalization, Other)
  Sender: FDA-Public Use
  Company Number: US-GILEAD-2016-0219609

PATIENT
  Age: 52 Year
  Sex: Female
  Weight: 105 kg

DRUGS (5)
  1. SILDENAFIL. [Concomitant]
     Active Substance: SILDENAFIL
  2. SPIRONOLACTONE. [Concomitant]
     Active Substance: SPIRONOLACTONE
  3. AMBRISENTAN [Suspect]
     Active Substance: AMBRISENTAN
     Indication: PULMONARY ARTERIAL HYPERTENSION
     Dosage: 10 MG, QD
     Route: 065
  4. COUMADIN [Concomitant]
     Active Substance: WARFARIN SODIUM
  5. VIMAX                              /01367502/ [Concomitant]

REACTIONS (6)
  - Peripheral swelling [Recovered/Resolved]
  - Swelling face [Recovered/Resolved]
  - Abdominal distension [Recovered/Resolved]
  - Oedema [Recovered/Resolved]
  - Fluid overload [Recovered/Resolved]
  - Loss of consciousness [Recovered/Resolved]
